FAERS Safety Report 6507365-5 (Version None)
Quarter: 2009Q4

REPORT INFORMATION
  Report Type: 
  Country: None (occurrence: None)
  Receive Date: 20091221
  Receipt Date: 20091208
  Transmission Date: 20100525
  Serious: Yes (Other)
  Sender: FDA-Public Use
  Company Number: CH-ELI_LILLY_AND_COMPANY-CH200912002092

PATIENT

DRUGS (3)
  1. GEMCITABINE HCL [Suspect]
     Indication: GALLBLADDER CANCER
     Dosage: 900 MG/M2 30-MIN INFUSION, UNK
     Route: 065
  2. OXALIPLATIN [Concomitant]
     Dosage: 65 MG/M2, 2-H INFUSION
     Route: 065
  3. FLUOROURACIL [Concomitant]
     Dosage: 1500 MG/M2 WITHOUT FOLINIC ACID AS A 24-H CONTINUOUS INFUSION, UNK
     Route: 065

REACTIONS (2)
  - DYSPHAGIA [None]
  - VOMITING [None]
